FAERS Safety Report 5125699-6 (Version None)
Quarter: 2006Q3

REPORT INFORMATION
  Report Type: 
  Country: None (occurrence: None)
  Receive Date: 20060814
  Receipt Date: 20051014
  Transmission Date: 20061208
  Serious: Yes (Other)
  Sender: FDA-Public Use
  Company Number: PHEH2005US08037

PATIENT
  Age: 69 Year
  Sex: Female
  Weight: 83.9154 kg

DRUGS (2)
  1. VISUDYNE [Suspect]
     Dosage: 10.8 MG DAILY IV
     Route: 042
     Dates: start: 20050519, end: 20050519
  2. FOSAMAX [Concomitant]

REACTIONS (10)
  - ARTHRALGIA [None]
  - BONE PAIN [None]
  - INJECTION SITE EXTRAVASATION [None]
  - INJECTION SITE IRRITATION [None]
  - INJECTION SITE OEDEMA [None]
  - INJECTION SITE PAIN [None]
  - INJECTION SITE PARAESTHESIA [None]
  - INJECTION SITE REACTION [None]
  - INJECTION SITE VESICLES [None]
  - SKIN EXFOLIATION [None]
